FAERS Safety Report 24935954 (Version 1)
Quarter: 2025Q1

REPORT INFORMATION
  Report Type: Report from Study
  Country: US (occurrence: US)
  Receive Date: 20250206
  Receipt Date: 20250206
  Transmission Date: 20250408
  Serious: Yes (Other)
  Sender: EXELIXIS
  Company Number: US-EXELIXIS-EXL-2024-000775

PATIENT
  Age: 81 Year
  Sex: Female

DRUGS (17)
  1. CABOMETYX [Suspect]
     Active Substance: CABOZANTINIB S-MALATE
     Indication: Neuroendocrine tumour
     Dosage: 60 MG, QD
     Dates: start: 20240910
  2. CABOMETYX [Suspect]
     Active Substance: CABOZANTINIB S-MALATE
     Dosage: 60 MG, QD
     Dates: end: 20241001
  3. CABOMETYX [Suspect]
     Active Substance: CABOZANTINIB S-MALATE
     Dosage: 40 MG, QD
     Dates: start: 20241018
  4. CABOMETYX [Suspect]
     Active Substance: CABOZANTINIB S-MALATE
     Dosage: 40 MG, QD
  5. CABOMETYX [Suspect]
     Active Substance: CABOZANTINIB S-MALATE
     Dosage: 40 MG, QD
  6. JANUMET [Concomitant]
     Active Substance: METFORMIN HYDROCHLORIDE\SITAGLIPTIN PHOSPHATE
  7. VALSARTAN [Concomitant]
     Active Substance: VALSARTAN
  8. AMLODIPINE [Concomitant]
     Active Substance: AMLODIPINE BESYLATE
  9. ATORVASTATIN [Concomitant]
     Active Substance: ATORVASTATIN
  10. ISOSORBIDE [Concomitant]
     Active Substance: ISOSORBIDE
  11. METOPROLOL [Concomitant]
     Active Substance: METOPROLOL
  12. ASPIRIN [Concomitant]
     Active Substance: ASPIRIN
  13. OMEPRAZOLE [Concomitant]
     Active Substance: OMEPRAZOLE
  14. NITROGLYCERIN [Concomitant]
     Active Substance: NITROGLYCERIN
  15. XALATAN [Concomitant]
     Active Substance: LATANOPROST
  16. SIMBRINZA [Concomitant]
     Active Substance: BRIMONIDINE TARTRATE\BRINZOLAMIDE
  17. LOPERAMIDE [Concomitant]
     Active Substance: LOPERAMIDE

REACTIONS (16)
  - Malignant neoplasm progression [Unknown]
  - Nausea [Not Recovered/Not Resolved]
  - Blood pressure increased [Recovering/Resolving]
  - Fatigue [Not Recovered/Not Resolved]
  - Diarrhoea [Not Recovered/Not Resolved]
  - Taste disorder [Recovering/Resolving]
  - Decreased appetite [Recovering/Resolving]
  - Stomatitis [Recovering/Resolving]
  - Headache [Not Recovered/Not Resolved]
  - Hepatic enzyme increased [Not Recovered/Not Resolved]
  - Poor quality sleep [Unknown]
  - Unevaluable event [Not Recovered/Not Resolved]
  - Dry mouth [Not Recovered/Not Resolved]
  - Laboratory test abnormal [Unknown]
  - Product dose omission issue [Unknown]
  - Off label use [Unknown]

NARRATIVE: CASE EVENT DATE: 20240901
